FAERS Safety Report 20551844 (Version 1)
Quarter: 2022Q1

REPORT INFORMATION
  Report Type: Report from Study
  Country: US (occurrence: US)
  Receive Date: 20220304
  Receipt Date: 20220304
  Transmission Date: 20220423
  Serious: Yes (Death, Other)
  Sender: FDA-Public Use
  Company Number: US-GW PHARMA-202202USGW00883

PATIENT

DRUGS (1)
  1. EPIDIOLEX [Suspect]
     Active Substance: CANNABIDIOL
     Indication: Product used for unknown indication
     Dosage: 120 MILLIGRAM, BID
     Route: 065

REACTIONS (2)
  - Death [Fatal]
  - Gastrointestinal disorder [Unknown]

NARRATIVE: CASE EVENT DATE: 20220212
